FAERS Safety Report 7548005-6 (Version None)
Quarter: 2011Q2

REPORT INFORMATION
  Report Type: 
  Country: None (occurrence: None)
  Receive Date: 20110524
  Receipt Date: 20110131
  Transmission Date: 20111010
  Serious: No
  Sender: FDA-Public Use
  Company Number: 026557

PATIENT
  Sex: Male
  Weight: 90.7 kg

DRUGS (3)
  1. PENTASA [Concomitant]
  2. PREVACID [Concomitant]
  3. CIMZIA [Suspect]
     Indication: CROHN'S DISEASE
     Dosage: 400 MG 1X/4 WEEKS SUBCUTANEOUS
     Route: 058
     Dates: start: 20100805

REACTIONS (2)
  - JOINT STIFFNESS [None]
  - ARTHRALGIA [None]
